FAERS Safety Report 25606744 (Version 1)
Quarter: 2025Q3

REPORT INFORMATION
  Report Type: Spontaneous
  Country: US (occurrence: US)
  Receive Date: 20250725
  Receipt Date: 20250725
  Transmission Date: 20251021
  Serious: Yes (Other)
  Sender: AMGEN
  Company Number: US-AMGEN-USASP2025142468

PATIENT
  Age: 37 Year
  Sex: Male

DRUGS (1)
  1. RITUXIMAB [Suspect]
     Active Substance: RITUXIMAB
     Indication: Tumefactive multiple sclerosis
     Route: 065

REACTIONS (5)
  - Gliosarcoma [Unknown]
  - Pulmonary toxicity [Unknown]
  - Confirmed e-cigarette or vaping product use associated lung injury [Unknown]
  - Grief reaction [Unknown]
  - Off label use [Unknown]
